FAERS Safety Report 24198518 (Version 3)
Quarter: 2024Q4

REPORT INFORMATION
  Report Type: Report from Study
  Country: CA (occurrence: CA)
  Receive Date: 20240812
  Receipt Date: 20241029
  Transmission Date: 20250115
  Serious: Yes (Other)
  Sender: UCB
  Company Number: CA-UCBSA-2023047187

PATIENT
  Age: 29 Year
  Sex: Female

DRUGS (3)
  1. CERTOLIZUMAB PEGOL [Suspect]
     Active Substance: CERTOLIZUMAB PEGOL
     Indication: Psoriatic arthropathy
     Dosage: 400 MILLIGRAM, EV 2 WEEKS(QOW)
     Route: 058
     Dates: start: 20230921
  2. CERTOLIZUMAB PEGOL [Suspect]
     Active Substance: CERTOLIZUMAB PEGOL
     Dosage: 200 MILLIGRAM, EV 2 WEEKS(QOW)
     Route: 058
     Dates: start: 2023
  3. CERTOLIZUMAB PEGOL [Suspect]
     Active Substance: CERTOLIZUMAB PEGOL
     Dosage: 200 MILLIGRAM, EV 2 WEEKS(QOW)
     Route: 058
     Dates: start: 20241010

REACTIONS (12)
  - Perinatal depression [Unknown]
  - Fatigue [Recovered/Resolved]
  - Nausea [Recovered/Resolved]
  - Headache [Recovered/Resolved]
  - Dizziness [Recovered/Resolved]
  - Pain [Unknown]
  - Maternal exposure before pregnancy [Unknown]
  - Maternal exposure during pregnancy [Unknown]
  - Incorrect dose administered [Unknown]
  - Insurance issue [Unknown]
  - Therapy interrupted [Unknown]
  - Loss of employment [Unknown]

NARRATIVE: CASE EVENT DATE: 20230921
